FAERS Safety Report 18772355 (Version 1)
Quarter: 2021Q1

REPORT INFORMATION
  Report Type: Spontaneous
  Country: US (occurrence: US)
  Receive Date: 20210121
  Receipt Date: 20210121
  Transmission Date: 20210419
  Serious: No
  Sender: FDA-Public Use
  Company Number: US-SUNOVION-2021SUN000067

PATIENT
  Sex: Male

DRUGS (4)
  1. LATUDA [Suspect]
     Active Substance: LURASIDONE HYDROCHLORIDE
     Dosage: 80 MG
     Route: 048
  2. SEROQUEL [Concomitant]
     Active Substance: QUETIAPINE FUMARATE
  3. LATUDA [Suspect]
     Active Substance: LURASIDONE HYDROCHLORIDE
     Dosage: 40 MG UNK
     Route: 048
  4. LATUDA [Suspect]
     Active Substance: LURASIDONE HYDROCHLORIDE
     Indication: TACHYPHRENIA
     Dosage: 120 MG
     Route: 048

REACTIONS (7)
  - Oropharyngeal discomfort [Unknown]
  - Weight increased [Unknown]
  - Oropharyngeal pain [Not Recovered/Not Resolved]
  - Dry mouth [Unknown]
  - Throat irritation [Not Recovered/Not Resolved]
  - Hunger [Unknown]
  - Off label use [Unknown]
